FAERS Safety Report 4344664-X (Version None)
Quarter: 2004Q2

REPORT INFORMATION
  Report Type: 
  Country: None (occurrence: None)
  Receive Date: 20040421
  Receipt Date: 20040405
  Transmission Date: 20050107
  Serious: Yes (Death, Hospitalization)
  Sender: FDA-Public Use
  Company Number: 20040400271

PATIENT
  Age: 81 Year
  Sex: Female

DRUGS (7)
  1. PHENERGAN [Suspect]
     Indication: NAUSEA
     Dates: start: 20040223, end: 20040223
  2. DIOVAN [Concomitant]
  3. TOPRAL (METOPROLOL SUCCINATE) [Concomitant]
  4. ASPIRIN [Concomitant]
  5. ACTONEL [Concomitant]
  6. ATIVAN [Concomitant]
  7. PAXIL [Concomitant]

REACTIONS (14)
  - ATRIAL FIBRILLATION [None]
  - BURNING SENSATION [None]
  - CARDIAC ARREST [None]
  - CEREBRAL HAEMORRHAGE [None]
  - CONFUSIONAL STATE [None]
  - FLUSHING [None]
  - HALLUCINATION, VISUAL [None]
  - HYPOTENSION [None]
  - PAIN IN EXTREMITY [None]
  - PAROTITIS [None]
  - RENAL FAILURE ACUTE [None]
  - SEPSIS [None]
  - SPEECH DISORDER [None]
  - URINE OUTPUT DECREASED [None]
